FAERS Safety Report 7930913-5 (Version None)
Quarter: 2011Q4

REPORT INFORMATION
  Report Type: 
  Country: None (occurrence: None)
  Receive Date: 20111121
  Receipt Date: 20111110
  Transmission Date: 20120403
  Serious: Yes (Hospitalization)
  Sender: FDA-Public Use
  Company Number: JP-EISAI INC-E7389-01484-SPO-JP

PATIENT
  Sex: Female
  Weight: 58 kg

DRUGS (6)
  1. HALAVEN [Suspect]
  2. LOXONIN [Concomitant]
     Indication: BREAST CANCER RECURRENT
     Route: 048
  3. HALAVEN [Suspect]
     Indication: BREAST CANCER RECURRENT
     Route: 041
     Dates: start: 20110727
  4. HALAVEN [Suspect]
     Indication: METASTASES TO LYMPH NODES
  5. HALAVEN [Suspect]
     Indication: METASTASES TO SKIN
  6. HALAVEN [Suspect]
     Indication: METASTASES TO BREAST

REACTIONS (3)
  - LEUKOPENIA [None]
  - FEBRILE NEUTROPENIA [None]
  - C-REACTIVE PROTEIN INCREASED [None]
